FAERS Safety Report 9066335 (Version 1)
Quarter: 2013Q1

REPORT INFORMATION
  Report Type: Report from Study
  Country: US (occurrence: US)
  Receive Date: 20130131
  Receipt Date: 20130131
  Transmission Date: 20140127
  Serious: Yes (Other)
  Sender: FDA-Public Use
  Company Number: US-ABBOTT-12P-163-1016594-00

PATIENT
  Age: 68 Year
  Sex: Female

DRUGS (9)
  1. HUMIRA [Suspect]
     Indication: RHEUMATOID ARTHRITIS
     Dates: start: 2006, end: 20121005
  2. VICODIN [Concomitant]
     Indication: PAIN
     Dosage: 500 MG 2-3 TIMES A DAY, AS NEEDED
  3. METHOTREXATE [Concomitant]
     Indication: RHEUMATOID ARTHRITIS
     Dosage: 2.5 MG 4 WEEKLY
  4. SIMVASTATIN [Concomitant]
     Indication: BLOOD CHOLESTEROL
  5. FUROSEMIDE [Concomitant]
     Indication: OEDEMA PERIPHERAL
  6. AMLODIPINE [Concomitant]
     Indication: BLOOD PRESSURE
  7. QUINAPRIL [Concomitant]
     Indication: BLOOD PRESSURE
  8. CALCIUM [Concomitant]
     Indication: MINERAL SUPPLEMENTATION
  9. FOLIC ACID [Concomitant]
     Indication: VITAMIN SUPPLEMENTATION

REACTIONS (2)
  - Colectomy [Unknown]
  - Knee arthroplasty [Unknown]
